FAERS Safety Report 6081158-8 (Version None)
Quarter: 2009Q1

REPORT INFORMATION
  Report Type: 
  Country: None (occurrence: None)
  Receive Date: 20090217
  Receipt Date: 20090130
  Transmission Date: 20090719
  Serious: Yes (Hospitalization, Other)
  Sender: FDA-Public Use
  Company Number: FR-GENENTECH-276877

PATIENT
  Sex: Female

DRUGS (2)
  1. ERLOTINIB [Suspect]
     Indication: COLORECTAL CANCER METASTATIC
     Dosage: 150 MG, QD
     Route: 048
     Dates: start: 20081209
  2. AVASTIN [Suspect]
     Indication: COLORECTAL CANCER METASTATIC
     Dosage: 7.5 MG, Q3W
     Route: 042
     Dates: start: 20081209

REACTIONS (1)
  - PANCREATITIS ACUTE [None]
